FAERS Safety Report 19547938 (Version 1)
Quarter: 2021Q3

REPORT INFORMATION
  Report Type: Spontaneous
  Country: GR (occurrence: GR)
  Receive Date: 20210715
  Receipt Date: 20210715
  Transmission Date: 20211014
  Serious: Yes (Disabling)
  Sender: FDA-Public Use
  Company Number: GR-ORGANON-O2107GRC000555

PATIENT
  Age: 56 Year
  Sex: Male
  Weight: 86 kg

DRUGS (7)
  1. LIPTRUZET [Suspect]
     Active Substance: ATORVASTATIN CALCIUM\EZETIMIBE
     Indication: HYPERLIPIDAEMIA
     Dosage: UNK
     Route: 048
     Dates: end: 20210525
  2. LOPRESSOR [Concomitant]
     Active Substance: METOPROLOL TARTRATE
     Dosage: UNK; DIVISIBLE COATED TABLET
  3. MODERNA COVID?19 VACCINE [Suspect]
     Active Substance: CX-024414
     Indication: COVID-19 IMMUNISATION
     Dosage: UNK
     Route: 030
     Dates: start: 20210523
  4. IMDUR [Concomitant]
     Active Substance: ISOSORBIDE MONONITRATE
     Dosage: UNK; PROLONGED RELEASE TABLET
  5. RANEXA [Concomitant]
     Active Substance: RANOLAZINE
     Indication: ACUTE CORONARY SYNDROME
     Dosage: UNK
     Route: 048
     Dates: start: 20050503, end: 20210525
  6. BRILIQUE [Concomitant]
     Active Substance: TICAGRELOR
     Dosage: UNK
  7. SALOSPIR [Concomitant]
     Active Substance: ASPIRIN
     Dosage: UNK

REACTIONS (2)
  - Tendonitis [Not Recovered/Not Resolved]
  - Pyrexia [Not Recovered/Not Resolved]

NARRATIVE: CASE EVENT DATE: 20200615
